FAERS Safety Report 17760364 (Version 8)
Quarter: 2022Q4

REPORT INFORMATION
  Report Type: Spontaneous
  Country: US (occurrence: US)
  Receive Date: 20200508
  Receipt Date: 20221222
  Transmission Date: 20230113
  Serious: Yes (Hospitalization)
  Sender: FDA-Public Use
  Company Number: US-VERTEX PHARMACEUTICALS-2020-001124

PATIENT
  Age: 74 Year
  Sex: Female

DRUGS (27)
  1. TRIKAFTA [Suspect]
     Active Substance: ELEXACAFTOR\IVACAFTOR\TEZACAFTOR
     Indication: Cystic fibrosis
     Dosage: 100MG ELEXACAFTOR/50MG TEZACAFTOR/75MG IVACAFTOR PM AND 150 MG IVACAFTOR AM
     Route: 048
     Dates: start: 20191214, end: 2020
  2. TRIKAFTA [Suspect]
     Active Substance: ELEXACAFTOR\IVACAFTOR\TEZACAFTOR
     Dosage: AM DOSE IN PM AND PM DOSE IN AM
     Route: 048
     Dates: start: 20200312, end: 20200505
  3. TRIKAFTA [Suspect]
     Active Substance: ELEXACAFTOR\IVACAFTOR\TEZACAFTOR
     Dosage: 2 TABS AM AND 1 TAB PM
     Route: 048
     Dates: start: 20200521
  4. CAYSTON [Suspect]
     Active Substance: AZTREONAM
     Indication: Product used for unknown indication
     Route: 065
  5. BUSPIRONE [Concomitant]
     Active Substance: BUSPIRONE HYDROCHLORIDE
  6. MONTELUKAST [Concomitant]
     Active Substance: MONTELUKAST SODIUM
  7. PROMETHAZINE [Concomitant]
     Active Substance: PROMETHAZINE HYDROCHLORIDE
  8. BUPROPION [Concomitant]
     Active Substance: BUPROPION
  9. VITAMIN D3 [Concomitant]
     Active Substance: CHOLECALCIFEROL
  10. CLONAZEPAM [Concomitant]
     Active Substance: CLONAZEPAM
  11. VITAMIN B12 [Concomitant]
     Active Substance: CYANOCOBALAMIN
  12. HYDROCHLOROTHIAZIDE [Concomitant]
     Active Substance: HYDROCHLOROTHIAZIDE
  13. NOVOLOG [Concomitant]
     Active Substance: INSULIN ASPART
  14. COMBIVENT [Concomitant]
     Active Substance: ALBUTEROL SULFATE\IPRATROPIUM BROMIDE
  15. OMEPRAZOLE [Concomitant]
     Active Substance: OMEPRAZOLE
  16. PAROXETINE [Concomitant]
     Active Substance: PAROXETINE
  17. POLYETHYLENE GLYCOLS [Concomitant]
     Active Substance: POLYETHYLENE GLYCOLS
  18. PREDNISONE [Concomitant]
     Active Substance: PREDNISONE
  19. PULMOZYME [Concomitant]
     Active Substance: DORNASE ALFA
  20. LISINOPRIL [Concomitant]
     Active Substance: LISINOPRIL
  21. ALBUTEROL SULFATE\IPRATROPIUM BROMIDE [Concomitant]
     Active Substance: ALBUTEROL SULFATE\IPRATROPIUM BROMIDE
  22. SODIUM CHLORIDE [Concomitant]
     Active Substance: SODIUM CHLORIDE
  23. NYSTATIN [Concomitant]
     Active Substance: NYSTATIN
  24. DOCUSATE [Concomitant]
     Active Substance: DOCUSATE
  25. SODIUM BICARBONATE\SODIUM CHLORIDE [Concomitant]
     Active Substance: SODIUM BICARBONATE\SODIUM CHLORIDE
  26. INSULIN NOS [Concomitant]
     Active Substance: INSULIN NOS
     Dosage: REDUCED DOSE
  27. GLUCAGON [Concomitant]
     Active Substance: GLUCAGON

REACTIONS (15)
  - Headache [Recovered/Resolved]
  - Abdominal pain upper [Recovered/Resolved]
  - Hypoglycaemia [Unknown]
  - Hypersensitivity [Recovering/Resolving]
  - Upper-airway cough syndrome [Recovering/Resolving]
  - Dyspnoea [Not Recovered/Not Resolved]
  - Fatigue [Recovering/Resolving]
  - Sinus headache [Recovering/Resolving]
  - Ageusia [Recovering/Resolving]
  - Insomnia [Recovered/Resolved]
  - Chest discomfort [Not Recovered/Not Resolved]
  - Respiratory tract congestion [Recovering/Resolving]
  - Disturbance in attention [Not Recovered/Not Resolved]
  - Sinusitis [Recovering/Resolving]
  - Nasal congestion [Recovering/Resolving]

NARRATIVE: CASE EVENT DATE: 20200130
